FAERS Safety Report 6937039-8 (Version None)
Quarter: 2010Q3

REPORT INFORMATION
  Report Type: 
  Country: None (occurrence: None)
  Receive Date: 20100823
  Receipt Date: 20100810
  Transmission Date: 20110219
  Serious: Yes (Other)
  Sender: FDA-Public Use
  Company Number: PHHY2010BR54258

PATIENT
  Sex: Male
  Weight: 28.5 kg

DRUGS (5)
  1. ELIDEL [Suspect]
     Indication: SKIN DISORDER
     Dosage: 1 PERCENT, TWICE DAILY
  2. RITALIN [Suspect]
     Indication: PSYCHOMOTOR HYPERACTIVITY
     Dosage: UNK
     Route: 048
  3. RITALIN [Suspect]
     Dosage: 10 MG, TID
  4. RITALIN [Suspect]
     Dosage: 10 MG, BID
  5. RITALIN LA [Suspect]
     Indication: PSYCHOMOTOR HYPERACTIVITY

REACTIONS (8)
  - AGITATION [None]
  - APATHY [None]
  - DECREASED APPETITE [None]
  - DEPRESSION [None]
  - DISTURBANCE IN ATTENTION [None]
  - HEAT RASH [None]
  - LEARNING DISABILITY [None]
  - SKIN DISORDER [None]
